FAERS Safety Report 9505713 (Version 1)
Quarter: 2013Q1

REPORT INFORMATION
  Report Type: Spontaneous
  Country: US (occurrence: None)
  Receive Date: 20130228
  Receipt Date: 20130228
  Transmission Date: 20140127
  Serious: Yes (Hospitalization)
  Sender: FDA-Public Use
  Company Number: KV201300015

PATIENT
  Age: 28 Year
  Sex: Female

DRUGS (1)
  1. MAKENA [Suspect]
     Indication: PREMATURE DELIVERY

REACTIONS (1)
  - Premature labour [None]
